FAERS Safety Report 19998196 (Version 1)
Quarter: 2021Q4

REPORT INFORMATION
  Report Type: Spontaneous
  Country: KR (occurrence: KR)
  Receive Date: 20211026
  Receipt Date: 20211026
  Transmission Date: 20220303
  Serious: Yes (Hospitalization, Other)
  Sender: FDA-Public Use
  Company Number: KR-DENTSPLY-2021SCDP000312

PATIENT
  Age: 47 Year
  Sex: Female

DRUGS (2)
  1. LIDOCAINE [Suspect]
     Active Substance: LIDOCAINE
     Indication: Joint manipulation
     Dosage: 6 MILLILITER TOTAL  2 % LIDOCAINE INJECTION
     Route: 065
  2. LIDOCAINE [Suspect]
     Active Substance: LIDOCAINE
     Indication: Nerve block

REACTIONS (4)
  - Nerve root injury cervical [None]
  - Neurotoxicity [None]
  - Neuralgia [None]
  - Local anaesthetic systemic toxicity [None]
